FAERS Safety Report 7427263-2 (Version None)
Quarter: 2011Q2

REPORT INFORMATION
  Report Type: 
  Country: None (occurrence: None)
  Receive Date: 20110420
  Receipt Date: 20110413
  Transmission Date: 20111010
  Serious: Yes (Other)
  Sender: FDA-Public Use
  Company Number: US-PFIZER INC-2011082375

PATIENT
  Sex: Female
  Weight: 52.154 kg

DRUGS (7)
  1. ZOLOFT [Suspect]
     Indication: ANXIETY
  2. PROZAC [Suspect]
     Indication: ANXIETY
  3. ZOLOFT [Suspect]
     Indication: DEPRESSION
     Dosage: 25 MG, 1X/DAY
     Route: 048
     Dates: start: 20110201
  4. PAXIL [Suspect]
     Indication: ANXIETY
  5. TOPAMAX [Concomitant]
     Indication: MIGRAINE
     Dosage: UNK
     Route: 048
  6. PAXIL [Suspect]
     Indication: DEPRESSION
     Dosage: 150 MG, 1X/DAY
     Route: 048
  7. PROZAC [Suspect]
     Indication: DEPRESSION
     Dosage: UNK
     Route: 048
     Dates: start: 20110101, end: 20110401

REACTIONS (6)
  - DEPRESSION [None]
  - DRUG INEFFECTIVE [None]
  - ANXIETY [None]
  - CONFUSIONAL STATE [None]
  - WITHDRAWAL SYNDROME [None]
  - OEDEMA PERIPHERAL [None]
